FAERS Safety Report 6161481-9 (Version None)
Quarter: 2009Q2

REPORT INFORMATION
  Report Type: 
  Country: None (occurrence: None)
  Receive Date: 20090417
  Receipt Date: 20090417
  Transmission Date: 20091009
  Serious: Yes (Hospitalization)
  Sender: FDA-Public Use
  Company Number: None

PATIENT
  Sex: Female

DRUGS (2)
  1. ABRAXANE [Suspect]
     Indication: BILE DUCT CANCER
     Dosage: ABRAXANE Q21DAYS IV
     Route: 042
     Dates: start: 20090406
  2. VANDETANIB [Suspect]
     Indication: BILE DUCT CANCER
     Dosage: VANDETANIB QD OR
     Route: 048
     Dates: start: 20090406, end: 20090408

REACTIONS (4)
  - ABDOMINAL PAIN [None]
  - HEPATIC FUNCTION ABNORMAL [None]
  - PERITONEAL FLUID ANALYSIS ABNORMAL [None]
  - RENAL FAILURE [None]
